FAERS Safety Report 5520572-3 (Version None)
Quarter: 2007Q4

REPORT INFORMATION
  Report Type: 
  Country: None (occurrence: None)
  Receive Date: 20071119
  Receipt Date: 20071113
  Transmission Date: 20080405
  Serious: Yes (Other)
  Sender: FDA-Public Use
  Company Number: US-PFIZER INC-2007063895

PATIENT
  Sex: Male
  Weight: 88.5 kg

DRUGS (4)
  1. LIPITOR [Suspect]
     Indication: BLOOD CHOLESTEROL
  2. CHANTIX [Suspect]
     Indication: EX-SMOKER
     Dates: start: 20070720, end: 20070727
  3. ATENOLOL [Concomitant]
  4. LEXAPRO [Concomitant]

REACTIONS (3)
  - ACTIVITIES OF DAILY LIVING IMPAIRED [None]
  - SOMNOLENCE [None]
  - THROMBOSIS [None]
